FAERS Safety Report 8391244-5 (Version None)
Quarter: 2012Q2

REPORT INFORMATION
  Report Type: 
  Country: None (occurrence: None)
  Receive Date: 20120529
  Receipt Date: 20120518
  Transmission Date: 20120825
  Serious: Yes (Hospitalization, Other)
  Sender: FDA-Public Use
  Company Number: US-JNJFOC-20110807456

PATIENT
  Sex: Female

DRUGS (7)
  1. PREDNISONE [Suspect]
     Indication: DERMATITIS
     Route: 048
  2. LEVAQUIN [Suspect]
     Indication: PNEUMONIA
     Route: 048
     Dates: start: 20080101
  3. LEVAQUIN [Suspect]
     Route: 048
     Dates: start: 20060101
  4. LEVAQUIN [Suspect]
     Indication: SINUSITIS
     Route: 048
     Dates: start: 20080101
  5. FLOVENT [Suspect]
     Indication: ASTHMA
     Route: 055
  6. LEVAQUIN [Suspect]
     Route: 048
     Dates: start: 20060101
  7. PREDNISONE [Suspect]
     Indication: DERMATITIS CONTACT
     Route: 048

REACTIONS (5)
  - ROTATOR CUFF SYNDROME [None]
  - TENDONITIS [None]
  - TENDON RUPTURE [None]
  - PLANTAR FASCIITIS [None]
  - MUSCLE RUPTURE [None]
